FAERS Safety Report 10134289 (Version 1)
Quarter: 2014Q2

REPORT INFORMATION
  Report Type: Spontaneous
  Country: US (occurrence: US)
  Receive Date: 20140428
  Receipt Date: 20140428
  Transmission Date: 20141212
  Serious: Yes (Other)
  Sender: FDA-Public Use
  Company Number: US-JNJFOC-20140413800

PATIENT
  Sex: Male

DRUGS (1)
  1. ABIRATERONE ACETATE [Suspect]
     Indication: PROSTATE CANCER
     Dosage: STRENGTH 250 MG
     Route: 048
     Dates: start: 20130711, end: 20140220

REACTIONS (2)
  - Swelling [Unknown]
  - Rash [Unknown]
